FAERS Safety Report 11285908 (Version 1)
Quarter: 2015Q3

REPORT INFORMATION
  Report Type: Spontaneous
  Country: CA (occurrence: CA)
  Receive Date: 20150721
  Receipt Date: 20150721
  Transmission Date: 20151125
  Serious: Yes (Other)
  Sender: FDA-Public Use
  Company Number: CA-ROCHE-1610662

PATIENT
  Age: 83 Year
  Sex: Female

DRUGS (1)
  1. XOLAIR [Suspect]
     Active Substance: OMALIZUMAB
     Indication: ASTHMA
     Route: 058
     Dates: start: 20140131

REACTIONS (4)
  - Insomnia [Unknown]
  - Asthma [Unknown]
  - Cardiac disorder [Unknown]
  - Frustration [Unknown]

NARRATIVE: CASE EVENT DATE: 201504
